FAERS Safety Report 6434682-X (Version None)
Quarter: 2009Q4

REPORT INFORMATION
  Report Type: 
  Country: None (occurrence: None)
  Receive Date: 20091109
  Receipt Date: 20091109
  Transmission Date: 20100525
  Serious: Yes (Life-Threatening, Hospitalization, Disabling, Other)
  Sender: FDA-Public Use
  Company Number: None

PATIENT
  Age: 63 Year
  Sex: Male
  Weight: 68.0396 kg

DRUGS (2)
  1. BACTRIM DS [Suspect]
  2. SEPTRA [Concomitant]

REACTIONS (5)
  - CORONARY ARTERY BYPASS [None]
  - DOCUMENTED HYPERSENSITIVITY TO ADMINISTERED DRUG [None]
  - DRUG PRESCRIBING ERROR [None]
  - MOVEMENT DISORDER [None]
  - MYOCARDIAL INFARCTION [None]
